FAERS Safety Report 4681430-X (Version None)
Quarter: 2005Q2

REPORT INFORMATION
  Report Type: 
  Country: None (occurrence: None)
  Receive Date: 20050601
  Receipt Date: 20050518
  Transmission Date: 20051028
  Serious: Yes (Other)
  Sender: FDA-Public Use
  Company Number: USA050394116

PATIENT
  Age: 75 Year
  Sex: Female

DRUGS (7)
  1. FORTEO [Suspect]
     Indication: OSTEOPOROSIS
     Dates: start: 20050324, end: 20050405
  2. FOSAMAX (ALENDORNATE SODIUM) [Concomitant]
  3. PRILOSEC (OMEPRAZOLE RATIOPHARM) [Concomitant]
  4. PENTASA (MESALIAZINE) [Concomitant]
  5. XANAX (ALPRAZOLAM DUM) [Concomitant]
  6. CALCIUM GLUCONATE [Concomitant]
  7. VITAMINS NOS [Concomitant]

REACTIONS (8)
  - BACK PAIN [None]
  - BLEPHAROSPASM [None]
  - BLOOD PRESSURE SYSTOLIC INCREASED [None]
  - GALLBLADDER DISORDER [None]
  - HEADACHE [None]
  - PANCREATITIS [None]
  - PHARMACEUTICAL PRODUCT COMPLAINT [None]
  - POLLAKIURIA [None]
